FAERS Safety Report 16013003 (Version 1)
Quarter: 2019Q1

REPORT INFORMATION
  Report Type: Spontaneous
  Country: US (occurrence: US)
  Receive Date: 20190227
  Receipt Date: 20190227
  Transmission Date: 20190418
  Serious: No
  Sender: FDA-Public Use
  Company Number: US-BEH-2019099814

PATIENT
  Age: 59 Year
  Sex: Female

DRUGS (11)
  1. PRIVIGEN [Suspect]
     Active Substance: HUMAN IMMUNOGLOBULIN G
     Indication: TRANSPLANT
     Dosage: 20 G/2 DAYS EVERY 4 WEEKS
     Route: 058
     Dates: start: 20180920
  2. LISINOPRIL. [Concomitant]
     Active Substance: LISINOPRIL
  3. WARFARIN [Concomitant]
     Active Substance: WARFARIN
  4. PRIVIGEN [Suspect]
     Active Substance: HUMAN IMMUNOGLOBULIN G
     Dosage: 10 G, 2 DAYS EVERY 4 WEEKS
     Route: 058
     Dates: start: 20180920
  5. PRIVIGEN [Suspect]
     Active Substance: HUMAN IMMUNOGLOBULIN G
     Indication: ORGAN TRANSPLANT
     Dosage: 5 G, 2 DAYS EVERY 4 WEEKS
     Route: 058
     Dates: start: 20180920
  6. MYCOPHENOLIC ACID. [Concomitant]
     Active Substance: MYCOPHENOLIC ACID
  7. HEPARIN [Concomitant]
     Active Substance: HEPARIN SODIUM
  8. DIPHENHYDRAMINE. [Concomitant]
     Active Substance: DIPHENHYDRAMINE
  9. SPIRONOLACTONE. [Concomitant]
     Active Substance: SPIRONOLACTONE
  10. METOPROLOL TARTRATE. [Concomitant]
     Active Substance: METOPROLOL TARTRATE
  11. METOPROLOL SUCCINATE. [Concomitant]
     Active Substance: METOPROLOL SUCCINATE

REACTIONS (1)
  - Fatigue [Not Recovered/Not Resolved]
